FAERS Safety Report 12521055 (Version 1)
Quarter: 2016Q2

REPORT INFORMATION
  Report Type: Spontaneous
  Country: US (occurrence: None)
  Receive Date: 20160630
  Receipt Date: 20160630
  Transmission Date: 20160815
  Serious: Yes (Hospitalization)
  Sender: FDA-Public Use
  Company Number: None

PATIENT
  Age: 37 Year
  Sex: Male
  Weight: 76 kg

DRUGS (15)
  1. ALTACE [Concomitant]
     Active Substance: RAMIPRIL
  2. VITAMIN B COMPLEX [Concomitant]
     Active Substance: CYANOCOBALAMIN\DEXPANTHENOL\NIACINAMIDE\PYRIDOXINE HYDROCHLORIDE\RIBOFLAVIN 5^-PHOSPHATE SODIUM\THIAMINE HYDROCHLORIDE\VITAMIN B COMPLEX
  3. NICOTINAMIDE [Concomitant]
     Active Substance: NIACINAMIDE
  4. GLUCOSAMINE [Concomitant]
     Active Substance: GLUCOSAMINE
  5. IRON [Concomitant]
     Active Substance: IRON
  6. INSULIN [Concomitant]
     Active Substance: INSULIN NOS
  7. ZOCOR [Concomitant]
     Active Substance: SIMVASTATIN
  8. NYSTATIN. [Concomitant]
     Active Substance: NYSTATIN
  9. TACROLIMUS. [Concomitant]
     Active Substance: TACROLIMUS
  10. VITAMIN E [Concomitant]
     Active Substance: .ALPHA.-TOCOPHEROL
  11. DIPHENHYDRAMINE. [Concomitant]
     Active Substance: DIPHENHYDRAMINE
  12. SIROLIMUS. [Suspect]
     Active Substance: SIROLIMUS
     Indication: TRANSPLANT
     Dosage: 7-9 MG PER DAY, ORAL
     Route: 048
     Dates: start: 20050415
  13. IMODIUM [Concomitant]
     Active Substance: LOPERAMIDE HYDROCHLORIDE
  14. VITAMIN C [Concomitant]
     Active Substance: ASCORBIC ACID
  15. BIOTENE NOS [Concomitant]
     Active Substance: CETYLPYRIDINIUM CHLORIDE OR SODIUM FLUORIDE OR SODIUM MONOFLUOROPHOSPHATE OR GLUCOSE OXIDASE\LACTOFERRIN\LACTOPEROXIDASE BOVINE\LYSOZYME

REACTIONS (2)
  - Pharyngitis [None]
  - Dysphagia [None]

NARRATIVE: CASE EVENT DATE: 20060223
